FAERS Safety Report 5632185-3 (Version None)
Quarter: 2008Q1

REPORT INFORMATION
  Report Type: 
  Country: None (occurrence: None)
  Receive Date: 20080220
  Receipt Date: 20080208
  Transmission Date: 20080703
  Serious: Yes (Life-Threatening, Hospitalization)
  Sender: FDA-Public Use
  Company Number: US-WYE-H02531308

PATIENT
  Sex: Female

DRUGS (2)
  1. EFFEXOR XR [Suspect]
     Dosage: 300 (UNITS UNSPECIFIED) ONE DAILY
     Route: 048
  2. CHANTIX [Interacting]
     Dosage: STARTER PACK
     Route: 048

REACTIONS (4)
  - APHASIA [None]
  - DRUG INTERACTION [None]
  - GRAND MAL CONVULSION [None]
  - MENTAL STATUS CHANGES [None]
